FAERS Safety Report 6403450-7 (Version None)
Quarter: 2009Q4

REPORT INFORMATION
  Report Type: 
  Country: None (occurrence: None)
  Receive Date: 20091015
  Receipt Date: 20091015
  Transmission Date: 20100525
  Serious: No
  Sender: FDA-Public Use
  Company Number: None

PATIENT
  Sex: Female
  Weight: 65 kg

DRUGS (1)
  1. REBIF [Suspect]
     Indication: MULTIPLE SCLEROSIS
     Dosage: 44MCG TIW SQ
     Route: 058
     Dates: start: 20031002, end: 20091014

REACTIONS (2)
  - INJECTION SITE NECROSIS [None]
  - INJECTION SITE REACTION [None]
